FAERS Safety Report 9135285 (Version 1)
Quarter: 2013Q1

REPORT INFORMATION
  Report Type: Spontaneous
  Country: US (occurrence: US)
  Receive Date: 20130304
  Receipt Date: 20130304
  Transmission Date: 20140127
  Serious: No
  Sender: FDA-Public Use
  Company Number: US-ENDO PHARMACEUTICALS INC.-ENDC20110074

PATIENT
  Age: 26 Year
  Sex: Female

DRUGS (2)
  1. ENDOCET [Suspect]
     Indication: PAIN
     Dosage: 50/1625 MG
     Route: 048
     Dates: start: 201105, end: 201106
  2. ENDOCET [Suspect]
     Dosage: 10/325 MG
     Route: 048
     Dates: start: 201001

REACTIONS (3)
  - Decreased appetite [Recovered/Resolved]
  - Fatigue [Recovered/Resolved]
  - Abdominal discomfort [Recovered/Resolved]
